FAERS Safety Report 5934030-5 (Version None)
Quarter: 2008Q4

REPORT INFORMATION
  Report Type: 
  Country: None (occurrence: None)
  Receive Date: 20081024
  Receipt Date: 20081017
  Transmission Date: 20090506
  Serious: Yes (Other)
  Sender: FDA-Public Use
  Company Number: GXBR2008US02047

PATIENT
  Age: 80 Year
  Sex: Male

DRUGS (1)
  1. LORATADINE [Suspect]
     Indication: POSTNASAL DRIP
     Dosage: 10 MG, QD, ORAL
     Route: 048
     Dates: start: 20060101

REACTIONS (7)
  - BLOOD SODIUM DECREASED [None]
  - DIALYSIS [None]
  - POLYPECTOMY [None]
  - RENAL CANCER [None]
  - RENAL FAILURE CHRONIC [None]
  - URETHRAL HAEMORRHAGE [None]
  - URINARY BLADDER POLYP [None]
